FAERS Safety Report 17941349 (Version 1)
Quarter: 2020Q2

REPORT INFORMATION
  Report Type: Spontaneous
  Country: US (occurrence: US)
  Receive Date: 20200624
  Receipt Date: 20200624
  Transmission Date: 20200714
  Serious: Yes (Hospitalization)
  Sender: FDA-Public Use
  Company Number: None

PATIENT
  Sex: Female

DRUGS (1)
  1. HUMIRA [Suspect]
     Active Substance: ADALIMUMAB
     Indication: CROHN^S DISEASE
     Route: 058
     Dates: start: 20200220

REACTIONS (6)
  - Ovarian cyst [None]
  - Abdominal pain [None]
  - Vascular occlusion [None]
  - Therapy interrupted [None]
  - Weight decreased [None]
  - Diarrhoea [None]
